FAERS Safety Report 6150673-0 (Version None)
Quarter: 2009Q2

REPORT INFORMATION
  Report Type: 
  Country: None (occurrence: None)
  Receive Date: 20090409
  Receipt Date: 20090409
  Transmission Date: 20091009
  Serious: Yes (Hospitalization)
  Sender: FDA-Public Use
  Company Number: DE-WYE-G03486109

PATIENT
  Age: 73 Month
  Sex: Male
  Weight: 70 kg

DRUGS (18)
  1. TAZOBAC [Suspect]
     Indication: ABSCESS
     Route: 042
     Dates: start: 20080714, end: 20080729
  2. INSULIN ACTRAPHANE [Concomitant]
     Indication: TYPE 2 DIABETES MELLITUS
     Dosage: 32 IU PER DAY
     Route: 058
     Dates: start: 19950101
  3. ALLOPURINOL [Concomitant]
     Indication: HYPERURICAEMIA
     Route: 048
     Dates: start: 20080101, end: 20080915
  4. METRONIDAZOLE HCL [Concomitant]
     Indication: PSEUDOMEMBRANOUS COLITIS
     Route: 048
     Dates: start: 20080907, end: 20080916
  5. CLOPIDOGREL [Concomitant]
     Route: 048
     Dates: start: 20080422
  6. DELIX [Concomitant]
     Indication: HYPERTENSION
     Route: 048
     Dates: start: 20080801, end: 20080830
  7. DIGITOXIN TAB [Concomitant]
     Indication: ATRIAL FIBRILLATION
     Route: 048
     Dates: start: 20000101
  8. FALITHROM [Concomitant]
     Indication: ATRIAL FIBRILLATION
     Route: 048
     Dates: end: 20080916
  9. LOCOL [Concomitant]
     Indication: HYPERCHOLESTEROLAEMIA
     Route: 048
     Dates: end: 20080916
  10. MAGNESIUM SULFATE [Concomitant]
     Indication: MAGNESIUM DEFICIENCY
     Route: 048
     Dates: end: 20080915
  11. NOVALGIN [Concomitant]
     Indication: PAIN
     Route: 048
     Dates: start: 20080117
  12. RIFUN [Concomitant]
     Indication: PROPHYLAXIS AGAINST GASTROINTESTINAL ULCER
     Route: 048
     Dates: start: 20070101
  13. SPIRIVA [Concomitant]
     Indication: CHRONIC OBSTRUCTIVE PULMONARY DISEASE
     Route: 055
  14. TORSEMIDE [Concomitant]
     Indication: HYPERTENSION
     Route: 048
     Dates: start: 20080101
  15. VALORON [Concomitant]
     Indication: PAIN
     Route: 048
     Dates: start: 20080701
  16. VERPAMIL [Concomitant]
     Indication: ATRIAL FIBRILLATION
     Route: 048
     Dates: start: 20000101
  17. XIPAMIDE [Concomitant]
     Indication: HYPERTENSION
     Route: 048
     Dates: start: 20080801, end: 20080830
  18. CLINDAMYCIN HCL [Suspect]
     Indication: ABSCESS
     Route: 058
     Dates: start: 20080717, end: 20080828

REACTIONS (2)
  - PSEUDOMEMBRANOUS COLITIS [None]
  - WEIGHT DECREASED [None]
